FAERS Safety Report 10622388 (Version 2)
Quarter: 2015Q1

REPORT INFORMATION
  Report Type: Report from Study
  Country: GB (occurrence: GB)
  Receive Date: 20141203
  Receipt Date: 20150330
  Transmission Date: 20150720
  Serious: Yes (Disabling, Other)
  Sender: FDA-Public Use
  Company Number: GB-ABBVIE-14K-167-1312320-00

PATIENT
  Age: 34 Year
  Sex: Female

DRUGS (2)
  1. HUMIRA [Suspect]
     Active Substance: ADALIMUMAB
     Indication: PSORIASIS
     Route: 050
     Dates: start: 2015
  2. HUMIRA [Suspect]
     Active Substance: ADALIMUMAB
     Indication: RHEUMATOID ARTHRITIS
     Route: 050
     Dates: start: 2009, end: 2014

REACTIONS (9)
  - Psoriasis [Unknown]
  - Knee operation [Unknown]
  - Drug dose omission [Unknown]
  - Psoriasis [Unknown]
  - Activities of daily living impaired [Unknown]
  - Gait disturbance [Unknown]
  - Peripheral swelling [Unknown]
  - Drug effect incomplete [Unknown]
  - Injection site pain [Unknown]

NARRATIVE: CASE EVENT DATE: 2012
